FAERS Safety Report 21009010 (Version 1)
Quarter: 2022Q2

REPORT INFORMATION
  Report Type: Spontaneous
  Country: CN (occurrence: CN)
  Receive Date: 20220627
  Receipt Date: 20220627
  Transmission Date: 20220720
  Serious: Yes (Other)
  Sender: FDA-Public Use
  Company Number: CN-MLMSERVICE-20220617-3622907-1

PATIENT
  Age: 26 Year
  Sex: Female

DRUGS (12)
  1. DEXAMETHASONE [Suspect]
     Active Substance: DEXAMETHASONE
     Indication: Chloroma
     Route: 037
  2. DEXAMETHASONE [Suspect]
     Active Substance: DEXAMETHASONE
     Indication: Central nervous system leukaemia
  3. CYTARABINE [Suspect]
     Active Substance: CYTARABINE
     Indication: Chloroma
     Dosage: D 1-4 (1 CYCLICAL)
     Route: 037
  4. CYTARABINE [Suspect]
     Active Substance: CYTARABINE
     Indication: Central nervous system leukaemia
  5. METHOTREXATE [Suspect]
     Active Substance: METHOTREXATE
     Indication: Central nervous system leukaemia
     Route: 037
  6. METHOTREXATE [Suspect]
     Active Substance: METHOTREXATE
     Indication: Chloroma
  7. CYTARABINE [Suspect]
     Active Substance: CYTARABINE
     Indication: Chloroma
     Dosage: D1-7
     Route: 065
     Dates: start: 201411, end: 2014
  8. CYTARABINE [Suspect]
     Active Substance: CYTARABINE
     Indication: Central nervous system leukaemia
     Dosage: D 1-4
     Route: 065
     Dates: start: 20160903, end: 2016
  9. IDARUBICIN [Suspect]
     Active Substance: IDARUBICIN
     Indication: Chloroma
     Dosage: D1-3
     Route: 065
     Dates: start: 201411, end: 2014
  10. IDARUBICIN [Suspect]
     Active Substance: IDARUBICIN
     Indication: Central nervous system leukaemia
     Dosage: D1-2
     Route: 065
     Dates: start: 20160903, end: 2016
  11. FLUDARABINE [Concomitant]
     Active Substance: FLUDARABINE PHOSPHATE
     Indication: Chloroma
     Dosage: DAY 1
  12. FLUDARABINE [Concomitant]
     Active Substance: FLUDARABINE PHOSPHATE
     Indication: Central nervous system leukaemia

REACTIONS (2)
  - Infection [Unknown]
  - Myelosuppression [Recovered/Resolved]
